FAERS Safety Report 7491551-4 (Version None)
Quarter: 2011Q2

REPORT INFORMATION
  Report Type: 
  Country: None (occurrence: None)
  Receive Date: 20110519
  Receipt Date: 20110512
  Transmission Date: 20111010
  Serious: Yes (Other)
  Sender: FDA-Public Use
  Company Number: PHHY2011GB40067

PATIENT
  Age: 2 Year
  Sex: Male
  Weight: 12.7 kg

DRUGS (4)
  1. CETIRIZINE HCL [Concomitant]
     Dates: start: 20110504
  2. DOUBLEBASE [Concomitant]
     Dates: start: 20110419, end: 20110420
  3. EUMOVATE [Concomitant]
     Dates: start: 20110421
  4. CHLORPHENIRAMINE MALEATE [Suspect]
     Dates: start: 20110504

REACTIONS (1)
  - CYANOSIS [None]
